FAERS Safety Report 5512637-7 (Version None)
Quarter: 2007Q4

REPORT INFORMATION
  Report Type: 
  Country: None (occurrence: None)
  Receive Date: 20071112
  Receipt Date: 20071101
  Transmission Date: 20080405
  Serious: Yes (Other)
  Sender: FDA-Public Use
  Company Number: US-JNJFOC-20071101026

PATIENT
  Age: 51 Year
  Sex: Male

DRUGS (2)
  1. ULTRAM ER [Suspect]
     Route: 048
  2. ULTRAM ER [Suspect]
     Indication: PAIN
     Route: 048

REACTIONS (1)
  - SUICIDAL IDEATION [None]
